FAERS Safety Report 6299542-6 (Version None)
Quarter: 2009Q3

REPORT INFORMATION
  Report Type: 
  Country: None (occurrence: None)
  Receive Date: 20090803
  Receipt Date: 20090722
  Transmission Date: 20100115
  Serious: Yes (Hospitalization)
  Sender: FDA-Public Use
  Company Number: USA/USA/09/0000270

PATIENT
  Age: 30 Year
  Sex: Female

DRUGS (1)
  1. LAMOTRIGINE [Suspect]
     Indication: DRUG USE FOR UNKNOWN INDICATION
     Dosage: 25 MG, 2 TABLETS TWICE DAILY PER ORAL
     Route: 048
     Dates: start: 20090429

REACTIONS (3)
  - CONVULSION [None]
  - MUSCLE STRAIN [None]
  - UPPER LIMB FRACTURE [None]
